FAERS Safety Report 4741525-9 (Version None)
Quarter: 2005Q3

REPORT INFORMATION
  Report Type: 
  Country: None (occurrence: None)
  Receive Date: 20050808
  Receipt Date: 20050523
  Transmission Date: 20060218
  Serious: No
  Sender: FDA-Public Use
  Company Number: 2005FR-00201

PATIENT
  Sex: Male

DRUGS (1)
  1. FLUOXETINE [Suspect]
     Indication: DEPRESSION
     Dosage: 20 MG OD
     Route: 048
     Dates: start: 20041202, end: 20050201

REACTIONS (1)
  - THROMBOCYTOPENIA [None]
